FAERS Safety Report 8001877-3 (Version None)
Quarter: 2011Q4

REPORT INFORMATION
  Report Type: 
  Country: None (occurrence: None)
  Receive Date: 20111222
  Receipt Date: 20111208
  Transmission Date: 20120403
  Serious: Yes (Disabling, Other)
  Sender: FDA-Public Use
  Company Number: US-WATSON-2008-06948

PATIENT
  Sex: Female
  Weight: 34.014 kg

DRUGS (3)
  1. OXYTROL [Suspect]
     Indication: HYPERTONIC BLADDER
  2. OXYTROL [Suspect]
     Indication: POLLAKIURIA
     Dosage: PATCH APPLIED EVERY FEW DAYS
     Route: 062
     Dates: start: 20050830, end: 20050923
  3. OXYTROL [Suspect]
     Indication: INCONTINENCE

REACTIONS (15)
  - OPTIC NERVE INJURY [None]
  - ACTIVITIES OF DAILY LIVING IMPAIRED [None]
  - PRIMARY PROGRESSIVE MULTIPLE SCLEROSIS [None]
  - OPTIC NEUROPATHY [None]
  - FALL [None]
  - VISUAL IMPAIRMENT [None]
  - HEAD INJURY [None]
  - DISABILITY [None]
  - ANGLE CLOSURE GLAUCOMA [None]
  - INJURY [None]
  - NIGHT BLINDNESS [None]
  - VISION BLURRED [None]
  - INTRAOCULAR PRESSURE INCREASED [None]
  - VISUAL ACUITY REDUCED [None]
  - VISUAL FIELD DEFECT [None]
